FAERS Safety Report 9116921 (Version 2)
Quarter: 2013Q1

REPORT INFORMATION
  Report Type: Spontaneous
  Country: US (occurrence: US)
  Receive Date: 20130225
  Receipt Date: 20130319
  Transmission Date: 20140127
  Serious: Yes (Hospitalization)
  Sender: FDA-Public Use
  Company Number: US-AMGEN-USASP2013011789

PATIENT
  Age: 81 Year
  Sex: Male
  Weight: 79.37 kg

DRUGS (7)
  1. ENBREL [Suspect]
     Indication: RHEUMATOID ARTHRITIS
     Dosage: 50 MG, QWK
     Route: 058
     Dates: start: 20090501
  2. AMRIX [Suspect]
     Indication: MUSCLE DISORDER
     Dosage: 15 MG, QD
     Route: 048
  3. WARFARIN [Concomitant]
     Indication: CORONARY ARTERY DISEASE
     Dosage: 5 MG, QD
     Route: 048
  4. LISINOPRIL [Concomitant]
     Indication: HYPERTENSION
     Dosage: 2.5 MG, QD
     Route: 048
  5. LASIX                              /00032601/ [Concomitant]
     Indication: RENAL FAILURE
     Dosage: 50 MG, QD
     Route: 048
  6. SIMVASTATIN [Concomitant]
     Indication: HYPERLIPIDAEMIA
     Dosage: 40 MG, QD
     Route: 048
  7. PREDNISONE [Concomitant]
     Indication: RHEUMATOID ARTHRITIS
     Dosage: 5 MG, QD
     Route: 048
     Dates: start: 2003

REACTIONS (8)
  - Dysuria [Recovered/Resolved]
  - Renal disorder [Recovered/Resolved]
  - Hospitalisation [Unknown]
  - Confusional state [Recovered/Resolved]
  - Gout [Recovered/Resolved]
  - Arthritis [Recovered/Resolved]
  - Memory impairment [Unknown]
  - Incorrect dose administered [Unknown]
